FAERS Safety Report 8107799-1 (Version None)
Quarter: 2011Q4

REPORT INFORMATION
  Report Type: 
  Country: None (occurrence: None)
  Receive Date: 20111227
  Receipt Date: 20110930
  Transmission Date: 20120403
  Serious: Yes (Other)
  Sender: FDA-Public Use
  Company Number: PHEH2011US03986

PATIENT
  Age: 38 Year
  Sex: Female
  Weight: 69.3 kg

DRUGS (3)
  1. GILENYA [Suspect]
     Indication: MULTIPLE SCLEROSIS
     Dosage: 0.5 MG, DAILY, ORAL
     Route: 048
     Dates: start: 20110630, end: 20110902
  2. CITALOPRAM HYDROBROMIDE [Concomitant]
  3. BACLOFEN [Concomitant]

REACTIONS (2)
  - BACK PAIN [None]
  - LYMPHOCYTE COUNT DECREASED [None]
